FAERS Safety Report 7340198-9 (Version None)
Quarter: 2011Q1

REPORT INFORMATION
  Report Type: 
  Country: None (occurrence: None)
  Receive Date: 20110309
  Receipt Date: 20110304
  Transmission Date: 20110831
  Serious: Yes (Other)
  Sender: FDA-Public Use
  Company Number: DE-BRISTOL-MYERS SQUIBB COMPANY-15532211

PATIENT
  Age: 55 Year
  Sex: Female
  Weight: 70 kg

DRUGS (1)
  1. QUANTALAN [Suspect]
     Dosage: 100 SACHETS ROA: POWDER FOR ATLEAST 1 YR
     Dates: start: 20110127, end: 20110129

REACTIONS (2)
  - PRURITUS [None]
  - NAUSEA [None]
